FAERS Safety Report 5836451-8 (Version None)
Quarter: 2008Q3

REPORT INFORMATION
  Report Type: 
  Country: None (occurrence: None)
  Receive Date: 20080807
  Receipt Date: 20080728
  Transmission Date: 20090109
  Serious: Yes (Other)
  Sender: FDA-Public Use
  Company Number: PHBS2008ES05095

PATIENT
  Age: 74 Year
  Sex: Male

DRUGS (13)
  1. ZOLEDRONIC ACID [Suspect]
     Indication: PROSTATE CANCER
     Dosage: 4 MG, UNK
     Route: 042
     Dates: start: 20050201, end: 20070701
  2. ZOLEDRONIC ACID [Suspect]
     Dosage: UNK
     Route: 042
     Dates: end: 20060601
  3. DOCETAXEL [Concomitant]
     Dosage: 75 MG/M2, UNK
     Dates: start: 20050201, end: 20051001
  4. DOCETAXEL [Concomitant]
     Dosage: 30 MG/M2, UNK
     Dates: start: 20060601, end: 20060801
  5. CHEMOTHERAPEUTICS NOS [Concomitant]
  6. CORTICOSTEROIDS [Concomitant]
  7. PREDNISONE [Suspect]
     Indication: PROSTATE CANCER
     Dosage: 10 MG, DAY
     Route: 048
     Dates: start: 20050201
  8. PREDNISONE [Suspect]
     Dosage: UNK
  9. CALCIUM [Concomitant]
     Indication: PROPHYLAXIS
     Dosage: UNK
     Dates: start: 20050201, end: 20051001
  10. VITAMIN D [Concomitant]
     Indication: PROPHYLAXIS
     Dosage: UNK
     Dates: start: 20050201, end: 20051001
  11. ESTRAMUSTINE PHOSPHATE [Suspect]
     Dosage: UNK
     Route: 048
     Dates: start: 20051001
  12. MITOXANTRONE [Concomitant]
     Dosage: 12 MG/M2, UNK
     Dates: start: 20070201
  13. ANTIINFLAMMATORY/ANTIRHEUMATIC PRODUCTS [Concomitant]
     Dosage: UNK
     Dates: start: 20070801

REACTIONS (4)
  - OSTEONECROSIS [None]
  - PAIN [None]
  - PROSTATIC SPECIFIC ANTIGEN INCREASED [None]
  - RENAL IMPAIRMENT [None]
